FAERS Safety Report 5196867-2 (Version None)
Quarter: 2006Q4

REPORT INFORMATION
  Report Type: 
  Country: None (occurrence: None)
  Receive Date: 20061227
  Receipt Date: 20061211
  Transmission Date: 20070319
  Serious: Yes (Hospitalization)
  Sender: FDA-Public Use
  Company Number: 2006SP008276

PATIENT
  Age: 47 Year
  Sex: Female
  Weight: 85 kg

DRUGS (2)
  1. PEG-INTRON [Suspect]
     Indication: HEPATITIS C
     Dosage: 100 MCG; QW; SC
     Route: 058
     Dates: start: 20061025, end: 20061205
  2. REBETOL [Suspect]
     Indication: HEPATITIS C
     Dosage: 600 MG; QD; PO
     Route: 048
     Dates: start: 20061025, end: 20061205

REACTIONS (2)
  - FALL [None]
  - FRACTURE [None]
